FAERS Safety Report 8510601 (Version 3)
Quarter: 2013Q3

REPORT INFORMATION
  Report Type: Report from Study
  Country: US (occurrence: US)
  Receive Date: 20120413
  Receipt Date: 20130730
  Transmission Date: 20140515
  Serious: Yes (Hospitalization)
  Sender: FDA-Public Use
  Company Number: US-ACTELION-A-NJ2012-63797

PATIENT
  Age: 80 Year
  Sex: Female

DRUGS (5)
  1. TRACLEER [Suspect]
     Indication: PULMONARY ARTERIAL HYPERTENSION
     Dosage: 125 MG, BID
     Route: 048
  2. TRACLEER [Suspect]
     Dosage: 62.5 MG, BID
     Route: 048
     Dates: start: 200610
  3. REVATIO [Concomitant]
  4. PRADAXA [Concomitant]
  5. REMODULIN [Concomitant]

REACTIONS (7)
  - Atrial fibrillation [Recovering/Resolving]
  - Cardioversion [Recovering/Resolving]
  - Cardiac ablation [Recovered/Resolved]
  - Local swelling [Recovering/Resolving]
  - Heart rate increased [Recovering/Resolving]
  - Malaise [Unknown]
  - Fatigue [Unknown]
